FAERS Safety Report 8583092-8 (Version None)
Quarter: 2012Q2

REPORT INFORMATION
  Report Type: 
  Country: None (occurrence: None)
  Receive Date: 20120423
  Receipt Date: 20091026
  Transmission Date: 20120825
  Serious: Yes (Hospitalization, Other)
  Sender: FDA-Public Use
  Company Number: PHEH2009US13127

PATIENT
  Age: 68 Year
  Sex: Male
  Weight: 101 kg

DRUGS (3)
  1. EXJADE [Suspect]
     Indication: IRON OVERLOAD
     Dosage: 2000 MG DAILY, ORAL
     Route: 048
     Dates: start: 20090915
  2. EXJADE [Suspect]
     Indication: MYELOFIBROSIS
     Dosage: 2000 MG DAILY, ORAL
     Route: 048
     Dates: start: 20090915
  3. EXJADE [Suspect]
     Indication: ANAEMIA
     Dosage: 2000 MG DAILY, ORAL
     Route: 048
     Dates: start: 20090915

REACTIONS (2)
  - SPLENECTOMY [None]
  - MYELOFIBROSIS [None]
